FAERS Safety Report 7124141-3 (Version None)
Quarter: 2010Q4

REPORT INFORMATION
  Report Type: 
  Country: None (occurrence: None)
  Receive Date: 20101126
  Receipt Date: 20101112
  Transmission Date: 20110411
  Serious: Yes (Hospitalization, Other)
  Sender: FDA-Public Use
  Company Number: PHFR2010GB05329

PATIENT
  Sex: Female

DRUGS (3)
  1. CLOZARIL [Suspect]
     Indication: SCHIZOPHRENIA
     Dosage: 175 MG, BID
     Route: 048
     Dates: start: 20100902
  2. METFORMIN [Concomitant]
  3. PROCYCLIDINE HYDROCHLORIDE 2MG TAB [Concomitant]

REACTIONS (7)
  - ANTIPSYCHOTIC DRUG LEVEL ABOVE THERAPEUTIC [None]
  - DYSPNOEA [None]
  - DYSPNOEA EXERTIONAL [None]
  - LEFT VENTRICULAR DYSFUNCTION [None]
  - LOWER RESPIRATORY TRACT INFECTION [None]
  - OBESITY [None]
  - TACHYCARDIA [None]
